FAERS Safety Report 26129294 (Version 2)
Quarter: 2025Q4

REPORT INFORMATION
  Report Type: Spontaneous
  Country: US (occurrence: US)
  Receive Date: 20251208
  Receipt Date: 20251222
  Transmission Date: 20260117
  Serious: Yes (Other)
  Sender: MACLEODS
  Company Number: US-MLMSERVICE-20251120-PI720809-00202-2

PATIENT

DRUGS (6)
  1. LINEZOLID [Suspect]
     Active Substance: LINEZOLID
     Indication: Mycobacterium abscessus infection
     Route: 042
     Dates: start: 20230127, end: 20231130
  2. LINEZOLID [Suspect]
     Active Substance: LINEZOLID
     Indication: Mycobacterium abscessus infection
  3. CLOFAZIMINE [Concomitant]
     Active Substance: CLOFAZIMINE
     Dosage: 50 MG PER GT, TWICE WEEKLY (1 MG/KG/DAY)
     Dates: start: 202303, end: 202410
  4. CLOFAZIMINE [Concomitant]
     Active Substance: CLOFAZIMINE
  5. BEDAQUILINE [Concomitant]
     Active Substance: BEDAQUILINE
     Dosage: 60 MG PER GT ONCE DAILY FOR 2 WEEKS
     Dates: start: 202304, end: 2023
  6. BEDAQUILINE [Concomitant]
     Active Substance: BEDAQUILINE
     Dosage: 60 MG, THREE TIMES WEEKLY
     Dates: start: 2023, end: 202410

REACTIONS (2)
  - Pancreatitis [Recovered/Resolved]
  - Lactic acidosis [Recovered/Resolved]

NARRATIVE: CASE EVENT DATE: 20231127
